FAERS Safety Report 7321533-4 (Version None)
Quarter: 2011Q1

REPORT INFORMATION
  Report Type: 
  Country: None (occurrence: None)
  Receive Date: 20110228
  Receipt Date: 20100311
  Transmission Date: 20110831
  Serious: No
  Sender: FDA-Public Use
  Company Number: A0850888A

PATIENT
  Sex: Female

DRUGS (5)
  1. SINUS MEDICATION [Concomitant]
  2. VALACYCLOVIR HYDROCHLORIDE [Suspect]
     Indication: HERPES VIRUS INFECTION
     Route: 048
     Dates: start: 20070101, end: 20070101
  3. FLEXERIL [Concomitant]
  4. PRILOSEC [Concomitant]
  5. ALPRAZOLAM [Concomitant]

REACTIONS (1)
  - DRUG INEFFECTIVE [None]
